FAERS Safety Report 18691243 (Version 1)
Quarter: 2021Q1

REPORT INFORMATION
  Report Type: Spontaneous
  Country: US (occurrence: US)
  Receive Date: 20210101
  Receipt Date: 20210101
  Transmission Date: 20210419
  Serious: No
  Sender: FDA-Public Use
  Company Number: US-GLAXOSMITHKLINE-CA2020254904

PATIENT
  Sex: Male

DRUGS (1)
  1. VOLTAREN EMULGEL JOINT PAIN EXTRA STRENGTH (2.32%) [Suspect]
     Active Substance: DICLOFENAC DIETHYLAMINE
     Indication: PAIN
     Dosage: 2 DF, ACTUATIONS
     Dates: start: 20201001

REACTIONS (1)
  - Drug ineffective [Unknown]
